FAERS Safety Report 5500234-9 (Version None)
Quarter: 2007Q4

REPORT INFORMATION
  Report Type: 
  Country: None (occurrence: None)
  Receive Date: 20071029
  Receipt Date: 20071019
  Transmission Date: 20080405
  Serious: Yes (Other)
  Sender: FDA-Public Use
  Company Number: CH-JNJFOC-20071005041

PATIENT
  Age: 18 Year
  Sex: Male

DRUGS (2)
  1. HALDOL [Suspect]
     Indication: SCHIZOPHRENIA
     Route: 048
  2. ZYPREXA [Suspect]
     Indication: SCHIZOPHRENIA, PARANOID TYPE
     Route: 048

REACTIONS (1)
  - DEEP VEIN THROMBOSIS [None]
